FAERS Safety Report 23295527 (Version 1)
Quarter: 2023Q4

REPORT INFORMATION
  Report Type: Spontaneous
  Country: IR (occurrence: IR)
  Receive Date: 20231214
  Receipt Date: 20231214
  Transmission Date: 20240110
  Serious: Yes (Other)
  Sender: FDA-Public Use
  Company Number: IR-CHIESI-2023CHF06590

PATIENT
  Sex: Female
  Weight: 1.6 kg

DRUGS (2)
  1. CUROSURF [Suspect]
     Active Substance: PORACTANT ALFA
     Indication: Neonatal respiratory distress syndrome
     Dosage: 1 DOSAGE FORM, UNK
  2. ACETAMINOPHEN [Concomitant]
     Active Substance: ACETAMINOPHEN
     Indication: Neonatal respiratory distress syndrome
     Dosage: 15 MILLIGRAM/KILOGRAM, Q6H
     Route: 042

REACTIONS (7)
  - Clonic convulsion [Recovered/Resolved]
  - Tachycardia [Unknown]
  - Neonatal hypoxia [Unknown]
  - Respiratory distress [Unknown]
  - Pigmentation disorder [Unknown]
  - Abdominal distension [Unknown]
  - Empyema [Recovered/Resolved]
